FAERS Safety Report 7203644-7 (Version None)
Quarter: 2010Q4

REPORT INFORMATION
  Report Type: 
  Country: None (occurrence: None)
  Receive Date: 20101228
  Receipt Date: 20101228
  Transmission Date: 20110411
  Serious: No
  Sender: FDA-Public Use
  Company Number: None

PATIENT
  Age: 63 Year
  Sex: Female
  Weight: 77.1115 kg

DRUGS (3)
  1. SUPREP BOWEL PREP KIT [Suspect]
     Indication: COLONOSCOPY
     Dosage: 6 ONCES X 2 PO
     Route: 048
     Dates: start: 20101216, end: 20101218
  2. SUPREP BOWEL PREP KIT [Suspect]
     Indication: COLONOSCOPY
     Dosage: 6 OUNCES X 2 PO
     Route: 048
     Dates: start: 20101216, end: 20101218
  3. SUPREP BOWEL PREP KIT [Suspect]
     Indication: COLONOSCOPY
     Dosage: 6 OUNCES X 2 PO
     Route: 048
     Dates: start: 20101216, end: 20101218

REACTIONS (1)
  - VOMITING [None]
